FAERS Safety Report 17075680 (Version 1)
Quarter: 2019Q4

REPORT INFORMATION
  Report Type: Spontaneous
  Country: US (occurrence: US)
  Receive Date: 20191125
  Receipt Date: 20191125
  Transmission Date: 20200122
  Serious: Yes (Other)
  Sender: FDA-Public Use
  Company Number: None

PATIENT
  Age: 44 Year
  Sex: Female
  Weight: 83.7 kg

DRUGS (3)
  1. ZOLPIDEM 2.5MG [Concomitant]
     Dates: start: 20191002
  2. CLINDAMYCIN 300MG [Concomitant]
     Active Substance: CLINDAMYCIN PHOSPHATE
     Dates: start: 20191022, end: 20191101
  3. PALIPERIDONE ER [Suspect]
     Active Substance: PALIPERIDONE
     Indication: PSYCHOTIC DISORDER
     Route: 048
     Dates: start: 20190814, end: 20191102

REACTIONS (7)
  - Therapy non-responder [None]
  - Psychotic disorder [None]
  - Amenorrhoea [None]
  - Aggression [None]
  - Insomnia [None]
  - Therapy change [None]
  - Hyperprolactinaemia [None]

NARRATIVE: CASE EVENT DATE: 20191029
